FAERS Safety Report 9526700 (Version 2)
Quarter: 2013Q3

REPORT INFORMATION
  Report Type: Spontaneous
  Country: US (occurrence: US)
  Receive Date: 20130916
  Receipt Date: 20130916
  Transmission Date: 20140515
  Serious: No
  Sender: FDA-Public Use
  Company Number: US-PURDUE-USA-2012-0087442

PATIENT
  Sex: Female
  Weight: 56.69 kg

DRUGS (1)
  1. INTERMEZZO [Suspect]
     Indication: INSOMNIA
     Dosage: 3.5 MG, PRN
     Route: 060
     Dates: start: 20120501

REACTIONS (1)
  - Drug dispensing error [Unknown]
